FAERS Safety Report 5669775-8 (Version None)
Quarter: 2008Q1

REPORT INFORMATION
  Report Type: 
  Country: None (occurrence: None)
  Receive Date: 20080313
  Receipt Date: 20080313
  Transmission Date: 20080703
  Serious: Yes (Hospitalization)
  Sender: FDA-Public Use
  Company Number: None

PATIENT
  Sex: Female
  Weight: 74.3899 kg

DRUGS (2)
  1. NIASPAN [Suspect]
     Indication: HIGH DENSITY LIPOPROTEIN DECREASED
     Dosage: 500MG QHS PO
     Route: 048
     Dates: start: 20071101
  2. NIASPAN [Suspect]
     Indication: LOW DENSITY LIPOPROTEIN INCREASED
     Dosage: 500MG QHS PO
     Route: 048
     Dates: start: 20071101

REACTIONS (7)
  - BACK INJURY [None]
  - CHILLS [None]
  - DIZZINESS [None]
  - FLUSHING [None]
  - HEAD INJURY [None]
  - LOSS OF CONSCIOUSNESS [None]
  - PALPITATIONS [None]
